FAERS Safety Report 5727298-1 (Version None)
Quarter: 2008Q2

REPORT INFORMATION
  Report Type: 
  Country: None (occurrence: None)
  Receive Date: 20080505
  Receipt Date: 20080423
  Transmission Date: 20081010
  Serious: Yes (Other)
  Sender: FDA-Public Use
  Company Number: GB-AMGEN-US276106

PATIENT
  Sex: Female
  Weight: 79 kg

DRUGS (12)
  1. ENBREL [Suspect]
     Indication: DRUG USE FOR UNKNOWN INDICATION
     Route: 058
     Dates: start: 20070601
  2. FOLIC ACID [Concomitant]
     Indication: ANKYLOSING SPONDYLITIS
     Route: 048
  3. GABAPENTIN [Concomitant]
     Indication: ANKYLOSING SPONDYLITIS
  4. GABAPENTIN [Concomitant]
     Indication: PAIN
  5. QVAR 40 [Concomitant]
     Indication: ASTHMA
     Dosage: UNKNOWN
     Route: 055
  6. SOLPADOL [Concomitant]
     Dosage: 2 DOSE EVERY 1 PRN
     Route: 048
  7. ORAMORPH SR [Concomitant]
     Dosage: PRN
     Route: 048
  8. CALCIUM PHOSPHATE/CALCIUM SODIUM LACTATE/ERGOCALCIFEROL [Concomitant]
     Indication: ANKYLOSING SPONDYLITIS
     Dosage: 1 DAILY
     Route: 048
  9. CALCIUM PHOSPHATE/CALCIUM SODIUM LACTATE/ERGOCALCIFEROL [Concomitant]
     Indication: PROPHYLAXIS
  10. VENTOLIN [Concomitant]
     Indication: ASTHMA
     Dosage: UNKNOWN
     Route: 055
  11. METHOTREXATE [Concomitant]
     Indication: ANKYLOSING SPONDYLITIS
     Dosage: 15MG WEEKLY
     Route: 048
  12. LANSOPRAZOLE [Concomitant]
     Indication: PROPHYLAXIS
     Dosage: 15MG DAILY
     Route: 048

REACTIONS (7)
  - ANAPHYLACTIC REACTION [None]
  - ASTHMA [None]
  - CONDITION AGGRAVATED [None]
  - DIZZINESS [None]
  - DYSPNOEA [None]
  - HYPERSENSITIVITY [None]
  - PARAESTHESIA [None]
